FAERS Safety Report 13477761 (Version 1)
Quarter: 2017Q2

REPORT INFORMATION
  Report Type: Report from Study
  Country: CA (occurrence: CA)
  Receive Date: 20170425
  Receipt Date: 20170425
  Transmission Date: 20170830
  Serious: Yes (Hospitalization, Other)
  Sender: FDA-Public Use
  Company Number: CA-AMGEN-CANSL2017059958

PATIENT
  Age: 66 Year
  Sex: Female

DRUGS (2)
  1. PROLIA [Suspect]
     Active Substance: DENOSUMAB
     Indication: PRODUCT USED FOR UNKNOWN INDICATION
     Dosage: UNK
     Route: 065
  2. CORTIZONE 10 [Concomitant]
     Active Substance: HYDROCORTISONE

REACTIONS (3)
  - Arthritis [Unknown]
  - Drug dose omission [Unknown]
  - Femur fracture [Unknown]

NARRATIVE: CASE EVENT DATE: 2011
